FAERS Safety Report 11383480 (Version 4)
Quarter: 2015Q4

REPORT INFORMATION
  Report Type: Spontaneous
  Country: JP (occurrence: JP)
  Receive Date: 20150814
  Receipt Date: 20151124
  Transmission Date: 20160304
  Serious: Yes (Hospitalization)
  Sender: FDA-Public Use
  Company Number: JP-SA-2015SA120332

PATIENT
  Age: 61 Year
  Sex: Male

DRUGS (2)
  1. G-LASTA [Concomitant]
     Active Substance: PEGFILGRASTIM
     Dates: start: 20150808, end: 20150808
  2. JEVTANA [Suspect]
     Active Substance: CABAZITAXEL
     Indication: PROSTATE CANCER
     Dosage: DOSE: 20?UNITS: NOT REPORTED
     Route: 042
     Dates: start: 20150807, end: 20150807

REACTIONS (1)
  - Renal disorder [Recovered/Resolved]

NARRATIVE: CASE EVENT DATE: 20150810
